FAERS Safety Report 6196804-8 (Version None)
Quarter: 2009Q2

REPORT INFORMATION
  Report Type: 
  Country: None (occurrence: None)
  Receive Date: 20090520
  Receipt Date: 20090513
  Transmission Date: 20091009
  Serious: Yes (Other)
  Sender: FDA-Public Use
  Company Number: PHEH2009US04854

PATIENT
  Sex: Female

DRUGS (1)
  1. RECLAST [Suspect]
     Indication: OSTEOPOROSIS

REACTIONS (5)
  - BONE PAIN [None]
  - CALCINOSIS [None]
  - ECHOCARDIOGRAM ABNORMAL [None]
  - MOVEMENT DISORDER [None]
  - MYALGIA [None]
